FAERS Safety Report 15126107 (Version 1)
Quarter: 2018Q3

REPORT INFORMATION
  Report Type: Spontaneous
  Country: US (occurrence: US)
  Receive Date: 20180614
  Receipt Date: 20180614
  Transmission Date: 20181010
  Serious: No
  Sender: FDA-Public Use
  Company Number: None

PATIENT
  Age: 53 Year
  Sex: Female

DRUGS (1)
  1. BOTOX [Suspect]
     Active Substance: ONABOTULINUMTOXINA
     Dates: start: 20170602, end: 20180614

REACTIONS (3)
  - Migraine [None]
  - Drug dose omission [None]
  - Inability to afford medication [None]

NARRATIVE: CASE EVENT DATE: 20180614
